FAERS Safety Report 5140890-0 (Version None)
Quarter: 2006Q4

REPORT INFORMATION
  Report Type: 
  Country: None (occurrence: None)
  Receive Date: 20060905
  Receipt Date: 20060802
  Transmission Date: 20070319
  Serious: No
  Sender: FDA-Public Use
  Company Number: 06P-163-0339410-00

PATIENT

DRUGS (1)
  1. TRICOR [Suspect]

REACTIONS (2)
  - FLUSHING [None]
  - MYOCARDIAL INFARCTION [None]
